FAERS Safety Report 6551497-2 (Version None)
Quarter: 2010Q1

REPORT INFORMATION
  Report Type: 
  Country: None (occurrence: None)
  Receive Date: 20100126
  Receipt Date: 20100120
  Transmission Date: 20100710
  Serious: Yes (Life-Threatening, Hospitalization)
  Sender: FDA-Public Use
  Company Number: DE-ELI_LILLY_AND_COMPANY-DE201001004552

PATIENT
  Age: 57 Year
  Sex: Female
  Weight: 71 kg

DRUGS (2)
  1. GEMZAR [Suspect]
     Indication: PANCREATIC CARCINOMA
     Dosage: 1G/QM, DAY 1,8,15 Q 29D
     Route: 042
     Dates: start: 20090211, end: 20091117
  2. ERLOTINIB [Concomitant]
     Indication: PANCREATIC CARCINOMA
     Dosage: 100 MG, DAILY (1/D)
     Route: 048
     Dates: start: 20090211, end: 20091201

REACTIONS (1)
  - MICROANGIOPATHIC HAEMOLYTIC ANAEMIA [None]
